FAERS Safety Report 7584701-2 (Version None)
Quarter: 2011Q2

REPORT INFORMATION
  Report Type: 
  Country: None (occurrence: None)
  Receive Date: 20110630
  Receipt Date: 20110616
  Transmission Date: 20111010
  Serious: Yes (Hospitalization, Other)
  Sender: FDA-Public Use
  Company Number: PHHY2011FR34186

PATIENT
  Age: 50 Year
  Sex: Male
  Weight: 90 kg

DRUGS (4)
  1. CORGARD [Concomitant]
     Dosage: 80 MG, QD
     Dates: start: 20101112
  2. RASILEZ [Suspect]
     Dosage: 300 MG, UNK
  3. RASILEZ [Suspect]
     Dosage: 150 MG, UNK
     Dates: start: 20101107
  4. RAMIPRIL [Concomitant]
     Dosage: 10 MG, QD
     Dates: start: 20101107

REACTIONS (5)
  - CARDIAC FAILURE [None]
  - DYSPNOEA [None]
  - SENSE OF OPPRESSION [None]
  - RENAL FAILURE [None]
  - HYPERTENSION [None]
